FAERS Safety Report 25591778 (Version 1)
Quarter: 2025Q3

REPORT INFORMATION
  Report Type: Report from Study
  Country: US (occurrence: US)
  Receive Date: 20250722
  Receipt Date: 20250722
  Transmission Date: 20251020
  Serious: No
  Sender: VANDA PHARMACEUTICALS
  Company Number: US-VANDA PHARMACEUTICALS, INC-2025TASUS007568

PATIENT
  Sex: Male

DRUGS (1)
  1. HETLIOZ [Suspect]
     Active Substance: TASIMELTEON
     Indication: Circadian rhythm sleep disorder
     Dosage: 20 MILLIGRAM, BY MOUTH EVERY 24 HOURS TAKEN 1 HOUR BEFORE BED TIME AT SAME TIME EVERY NIGHT WITHOUT
     Route: 048
     Dates: start: 20250416

REACTIONS (1)
  - Inappropriate schedule of product administration [Not Recovered/Not Resolved]
